FAERS Safety Report 15670327 (Version 1)
Quarter: 2018Q4

REPORT INFORMATION
  Report Type: Spontaneous
  Country: US (occurrence: US)
  Receive Date: 20181129
  Receipt Date: 20181129
  Transmission Date: 20190205
  Serious: Yes (Death)
  Sender: FDA-Public Use
  Company Number: US-TEVA-2018-US-980581

PATIENT
  Age: 24 Year
  Sex: Male

DRUGS (1)
  1. ALPRAZOLAM. [Suspect]
     Active Substance: ALPRAZOLAM
     Indication: DRUG ABUSE
     Route: 045

REACTIONS (2)
  - Drug abuse [Fatal]
  - Loss of consciousness [Fatal]
